FAERS Safety Report 7035560-8 (Version None)
Quarter: 2010Q4

REPORT INFORMATION
  Report Type: 
  Country: None (occurrence: None)
  Receive Date: 20101008
  Receipt Date: 20100929
  Transmission Date: 20110411
  Serious: No
  Sender: FDA-Public Use
  Company Number: KR-JNJFOC-20101000820

PATIENT
  Age: 75 Year
  Sex: Female

DRUGS (3)
  1. DURAGESIC-100 [Suspect]
     Indication: PAIN IN EXTREMITY
     Route: 062
  2. ANTIHYPERTENSIVES [Concomitant]
     Indication: HYPERTENSION
     Route: 065
  3. UNKNOWN MEDICATION [Concomitant]
     Indication: GASTROOESOPHAGEAL REFLUX DISEASE
     Route: 065

REACTIONS (2)
  - CARDIAC DISORDER [None]
  - WRONG TECHNIQUE IN DRUG USAGE PROCESS [None]
